FAERS Safety Report 13985739 (Version 2)
Quarter: 2020Q3

REPORT INFORMATION
  Report Type: Spontaneous
  Country: US (occurrence: US)
  Receive Date: 20170919
  Receipt Date: 20200924
  Transmission Date: 20201102
  Serious: No
  Sender: FDA-Public Use
  Company Number: US-ENDO PHARMACEUTICALS INC-2017-002648

PATIENT
  Sex: Female

DRUGS (1)
  1. MEGESTROL ACETATE. [Suspect]
     Active Substance: MEGESTROL ACETATE
     Indication: HOT FLUSH
     Dosage: 1 DF, QID
     Route: 048

REACTIONS (3)
  - Abdominal discomfort [Recovered/Resolved]
  - Hot flush [Unknown]
  - Off label use [Unknown]

NARRATIVE: CASE EVENT DATE: 2017
